FAERS Safety Report 12245220 (Version 1)
Quarter: 2016Q2

REPORT INFORMATION
  Report Type: Spontaneous
  Country: US (occurrence: US)
  Receive Date: 20160407
  Receipt Date: 20160407
  Transmission Date: 20160815
  Serious: No
  Sender: FDA-Public Use
  Company Number: US-PFIZER INC-2016155447

PATIENT
  Age: 38 Year
  Sex: Male
  Weight: 99.79 kg

DRUGS (2)
  1. LYRICA [Suspect]
     Active Substance: PREGABALIN
     Dosage: 150 MG, UNK
  2. LYRICA [Suspect]
     Active Substance: PREGABALIN
     Dosage: 75 MG, UNK

REACTIONS (5)
  - Dysarthria [Unknown]
  - Feeling abnormal [Unknown]
  - Coordination abnormal [Unknown]
  - Product quality issue [Unknown]
  - Poor quality drug administered [Unknown]
